FAERS Safety Report 15408995 (Version 1)
Quarter: 2018Q3

REPORT INFORMATION
  Report Type: Spontaneous
  Country: BE (occurrence: BE)
  Receive Date: 20180920
  Receipt Date: 20180920
  Transmission Date: 20181010
  Serious: Yes (Death, Hospitalization)
  Sender: FDA-Public Use
  Company Number: BE-MYLANLABS-2018M1069044

PATIENT
  Age: 81 Year
  Sex: Female

DRUGS (12)
  1. MIRTAZAPINE. [Suspect]
     Active Substance: MIRTAZAPINE
     Indication: DEPRESSION
     Dosage: 15 MG, QD,J^IGNORE SI LE TRAITEMENT ?TAIT D?J? D?BUT? LORS DE L^APPARITION DES EFFETS II
     Route: 048
  2. OMEPRAZOLE. [Interacting]
     Active Substance: OMEPRAZOLE
     Indication: PRODUCT USED FOR UNKNOWN INDICATION
     Dosage: 40 MG, QD, TRAITEMENT CHRONIQUE
     Route: 048
  3. MOXONIDINE [Concomitant]
     Active Substance: MOXONIDINE
     Indication: PRODUCT USED FOR UNKNOWN INDICATION
     Dosage: UNK, TRAITEMENT CHRONIQUE
     Route: 048
  4. ALLOPURINOL. [Concomitant]
     Active Substance: ALLOPURINOL
     Indication: PRODUCT USED FOR UNKNOWN INDICATION
     Dosage: 100 MG, QD, TRAITEMENT CHRONIQUE
     Route: 048
  5. MIRTAZAPINE. [Suspect]
     Active Substance: MIRTAZAPINE
     Indication: INSOMNIA
  6. CORDARONE [Interacting]
     Active Substance: AMIODARONE HYDROCHLORIDE
     Indication: PRODUCT USED FOR UNKNOWN INDICATION
     Dosage: 100 MG, QD,TRAITEMENT CHRONIQUE
     Route: 048
  7. LASIX [Interacting]
     Active Substance: FUROSEMIDE
     Indication: PRODUCT USED FOR UNKNOWN INDICATION
     Dosage: 80 MG, QD, TRAITEMENT CHRONIQUE
     Route: 048
  8. TENORMIN [Concomitant]
     Active Substance: ATENOLOL
     Indication: PRODUCT USED FOR UNKNOWN INDICATION
     Dosage: 32.5 MG, QD, TRAITEMENT CHRONIQUE^(0.5 CO LE MATIN = 1 CO LE SOIR)
     Route: 048
  9. SERTRALINE [Interacting]
     Active Substance: SERTRALINE HYDROCHLORIDE
     Indication: DEPRESSION
     Dosage: , TRAITEMENT CHRONIQUE ^DOSE D?GRESSIVE POUR ?TRE REMPLAC? PAR MIRTAZAPINE50 MG, QD
     Route: 048
  10. ERYTHROFORTE [Interacting]
     Active Substance: ERYTHROMYCIN ETHYLSUCCINATE
     Indication: PRODUCT USED FOR UNKNOWN INDICATION
     Dosage: 1500 MG, QD
     Route: 048
     Dates: start: 20180102, end: 20180109
  11. HYDRALAZINE [Concomitant]
     Active Substance: HYDRALAZINE HYDROCHLORIDE
     Indication: PRODUCT USED FOR UNKNOWN INDICATION
     Dosage: 75 MG, QD, TRAITEMENT CHRONIQUE
     Route: 048
  12. ASAFLOW [Concomitant]
     Active Substance: ASPIRIN
     Indication: PRODUCT USED FOR UNKNOWN INDICATION
     Dosage: 80 MG, QD, TRAITEMENT CHRONIQUE
     Route: 048

REACTIONS (3)
  - Drug interaction [Fatal]
  - Death [Fatal]
  - Electrocardiogram QT prolonged [Fatal]
